FAERS Safety Report 9438761 (Version 1)
Quarter: 2013Q3

REPORT INFORMATION
  Report Type: Spontaneous
  Country: DE (occurrence: DE)
  Receive Date: 20130802
  Receipt Date: 20130802
  Transmission Date: 20140515
  Serious: Yes (Congenital Anomaly)
  Sender: FDA-Public Use
  Company Number: DE-MUTUAL PHARMACEUTICAL COMPANY, INC.-ALLP20130053

PATIENT
  Sex: Male

DRUGS (4)
  1. ALLOPURINOL [Suspect]
     Route: 064
  2. HYDROCHLOROTHIAZIDE [Concomitant]
     Route: 064
  3. PYRIDOXINE [Concomitant]
     Route: 064
  4. SODIUM CARBONATE [Concomitant]
     Route: 064

REACTIONS (12)
  - Cleft lip and palate [None]
  - Low set ears [None]
  - Conductive deafness [None]
  - Retrognathia [None]
  - Microphthalmos [None]
  - Hepatosplenomegaly [None]
  - Cholestasis [None]
  - Renal hypoplasia [None]
  - Cryptorchism [None]
  - Micropenis [None]
  - Dilatation ventricular [None]
  - Osteopenia [None]
